FAERS Safety Report 9908194 (Version 1)
Quarter: 2013Q2

REPORT INFORMATION
  Report Type: Spontaneous
  Country: US (occurrence: None)
  Receive Date: 20130305
  Receipt Date: 20130305
  Transmission Date: 20140414
  Serious: Yes (Other)
  Sender: FDA-Public Use
  Company Number: 163-21880-12122290

PATIENT
  Age: 67 Year
  Sex: Male

DRUGS (5)
  1. REVLIMID (LENALIDOMIDE) (25 MILLIGRAM, CAPSULES) [Suspect]
     Indication: PLASMA CELL MYELOMA
     Dosage: 25 MG, 1 IN 1 D, PO
     Route: 048
     Dates: start: 20121017, end: 20121210
  2. FUROSEMIDE (FUROSEMIDE) (UNKNOWN) [Concomitant]
  3. ALLOPURINOL (ALLOPURINOL) (UNKNOWN) [Concomitant]
  4. METFORMIN (METFORMIN) (UNKNOWN) [Concomitant]
  5. CARVEDILOL (CARVEDILOL) (UNKNOWN) [Concomitant]

REACTIONS (4)
  - Drug intolerance [None]
  - Nausea [None]
  - Decreased appetite [None]
  - Dysgeusia [None]
